FAERS Safety Report 4645401-1 (Version None)
Quarter: 2005Q2

REPORT INFORMATION
  Report Type: 
  Country: None (occurrence: None)
  Receive Date: 20050425
  Receipt Date: 20050413
  Transmission Date: 20051028
  Serious: Yes (Life-Threatening)
  Sender: FDA-Public Use
  Company Number: 2005058587

PATIENT
  Age: 44 Year
  Sex: Male

DRUGS (4)
  1. IRINOTECAN HCL [Suspect]
     Indication: COLORECTAL CANCER
     Dosage: 80-100 MG/INTERMITTENT, INTRAVENOUS
     Route: 042
     Dates: start: 20041122, end: 20050201
  2. IRINOTECAN HCL [Suspect]
     Indication: RECTAL CANCER
     Dosage: 80-100 MG/INTERMITTENT, INTRAVENOUS
     Route: 042
     Dates: start: 20041122, end: 20050201
  3. CAALCIUM FOLINATE (CALCIUM FOLINATE) [Concomitant]
  4. FLUOROURACIL [Concomitant]

REACTIONS (1)
  - SMALL INTESTINAL PERFORATION [None]
